FAERS Safety Report 8789168 (Version 1)
Quarter: 2012Q4

REPORT INFORMATION
  Report Type: 
  Country: US (occurrence: None)
  Receive Date: 20120907
  Receipt Date: 20120907
  Transmission Date: 20130627
  Serious: No
  Sender: FDA-Public Use
  Company Number: None

PATIENT
  Sex: Female
  Weight: 75 kg

DRUGS (3)
  1. CARBOPLATIN [Suspect]
  2. CISPLATIN [Suspect]
  3. PACLITAXEL [Suspect]

REACTIONS (3)
  - Hypocalcaemia [None]
  - Hypomagnesaemia [None]
  - Hypokalaemia [None]
